FAERS Safety Report 5335622-7 (Version None)
Quarter: 2007Q2

REPORT INFORMATION
  Report Type: 
  Country: None (occurrence: None)
  Receive Date: 20070322
  Receipt Date: 20070117
  Transmission Date: 20071010
  Serious: No
  Sender: FDA-Public Use
  Company Number: 2007US000156

PATIENT
  Sex: Female

DRUGS (2)
  1. VESICARE [Suspect]
     Indication: DRUG USE FOR UNKNOWN INDICATION
     Dosage: 5 MG, ORAL
     Route: 048
  2. LASIX [Concomitant]

REACTIONS (4)
  - ABDOMINAL DISTENSION [None]
  - ABNORMAL SLEEP-RELATED EVENT [None]
  - DRY MOUTH [None]
  - DYSPNOEA [None]
